FAERS Safety Report 16411497 (Version 5)
Quarter: 2022Q1

REPORT INFORMATION
  Report Type: Report from Study
  Country: JP (occurrence: JP)
  Receive Date: 20190610
  Receipt Date: 20220113
  Transmission Date: 20220423
  Serious: Yes (Disabling)
  Sender: FDA-Public Use
  Company Number: JP-PFIZER INC-2019167362

PATIENT
  Age: 75 Year
  Sex: Female
  Weight: 46.6 kg

DRUGS (7)
  1. VYNDAQEL [Suspect]
     Active Substance: TAFAMIDIS MEGLUMINE
     Indication: Hereditary neuropathic amyloidosis
     Dosage: 20 MG, 1X/DAY
     Route: 048
     Dates: start: 20190405
  2. LYRICA [Concomitant]
     Active Substance: PREGABALIN
     Indication: Hereditary neuropathic amyloidosis
     Dosage: 50 MG, 1X/DAY
     Route: 048
     Dates: start: 2007
  3. CALONAL [Concomitant]
     Active Substance: ACETAMINOPHEN
     Indication: Hereditary neuropathic amyloidosis
     Dosage: 400 MG, 3X/DAY
     Route: 048
     Dates: start: 201810
  4. GLYCOSAMINOGLYCANS [Concomitant]
     Active Substance: GLYCOSAMINOGLYCANS
     Dosage: 50 G X 4 BOTTLES
  5. HERBALS [Concomitant]
     Active Substance: HERBALS
     Indication: Hereditary neuropathic amyloidosis
     Dosage: 2.5 G, 3X/DAY
     Dates: start: 201810
  6. HERBALS [Concomitant]
     Active Substance: HERBALS
     Indication: Hereditary neuropathic amyloidosis
     Dosage: 2.5 G, 3X/DAY
     Route: 048
     Dates: start: 201810
  7. ZETIA [Concomitant]
     Active Substance: EZETIMIBE
     Dosage: UNK

REACTIONS (16)
  - Retinal haemorrhage [Not Recovered/Not Resolved]
  - Condition aggravated [Not Recovered/Not Resolved]
  - Hypoaesthesia [Not Recovered/Not Resolved]
  - Vision blurred [Not Recovered/Not Resolved]
  - Condition aggravated [Not Recovered/Not Resolved]
  - Headache [Recovering/Resolving]
  - Nausea [Recovered/Resolved]
  - Diarrhoea [Recovered/Resolved]
  - Swelling [Unknown]
  - Constipation [Unknown]
  - Decreased appetite [Unknown]
  - Intraocular pressure increased [Recovered/Resolved]
  - Visual impairment [Unknown]
  - Dizziness postural [Unknown]
  - Sensory disturbance [Unknown]
  - Condition aggravated [Unknown]

NARRATIVE: CASE EVENT DATE: 20190101
